FAERS Safety Report 14028325 (Version 1)
Quarter: 2017Q3

REPORT INFORMATION
  Report Type: Spontaneous
  Country: US (occurrence: None)
  Receive Date: 20170930
  Receipt Date: 20170930
  Transmission Date: 20171128
  Serious: No
  Sender: FDA-Public Use
  Company Number: None

PATIENT
  Age: 11 Month
  Sex: Female
  Weight: 10.1 kg

DRUGS (8)
  1. CYTARABINE. [Suspect]
     Active Substance: CYTARABINE
     Dates: end: 20170912
  2. DAUNORUBICIN [Suspect]
     Active Substance: DAUNORUBICIN
     Dates: end: 20170831
  3. ONCASPAR [Suspect]
     Active Substance: PEGASPARGASE
     Dates: end: 20170903
  4. PREDNISONE. [Suspect]
     Active Substance: PREDNISONE
     Dates: end: 20170830
  5. VINCRISTINE SULFATE. [Suspect]
     Active Substance: VINCRISTINE SULFATE
     Dates: end: 20170920
  6. DEXAMETHASONE. [Suspect]
     Active Substance: DEXAMETHASONE
     Dates: end: 20170919
  7. HYDROCORTISONE. [Suspect]
     Active Substance: HYDROCORTISONE
     Dates: end: 20170920
  8. METHOTREXATE. [Suspect]
     Active Substance: METHOTREXATE
     Dates: end: 20170920

REACTIONS (1)
  - Blood triglycerides increased [None]

NARRATIVE: CASE EVENT DATE: 20170925
